FAERS Safety Report 14520520 (Version 1)
Quarter: 2018Q1

REPORT INFORMATION
  Report Type: Spontaneous
  Country: IT (occurrence: IT)
  Receive Date: 20180212
  Receipt Date: 20180212
  Transmission Date: 20180509
  Serious: Yes (Hospitalization)
  Sender: FDA-Public Use
  Company Number: IT-TEVA-2010-15462

PATIENT
  Age: 44 Year
  Sex: Male

DRUGS (8)
  1. CLARITHROMYCIN EXTENDED RELEASE [Suspect]
     Active Substance: CLARITHROMYCIN
     Indication: LUNG CONSOLIDATION
     Dosage: 1 GRAM DAILY;
     Route: 048
  2. TAZOBACTAM [Suspect]
     Active Substance: TAZOBACTAM
     Indication: LUNG CONSOLIDATION
     Dosage: 13.5 GRAM DAILY;
     Route: 042
  3. CLAVULANATE POTASSIUM [Suspect]
     Active Substance: CLAVULANATE POTASSIUM
     Indication: HYPERPYREXIA
     Route: 048
  4. RIFAMPICIN [Suspect]
     Active Substance: RIFAMPIN
     Indication: PNEUMONIA LEGIONELLA
     Dosage: 900 MILLIGRAM DAILY;
  5. PIPERACILLIN [Suspect]
     Active Substance: PIPERACILLIN
     Indication: LUNG CONSOLIDATION
     Route: 042
  6. AMOXICILLIN. [Suspect]
     Active Substance: AMOXICILLIN
     Indication: HYPERPYREXIA
     Route: 048
  7. LEVOFLOXACIN. [Suspect]
     Active Substance: LEVOFLOXACIN
     Indication: LEGIONELLA TEST POSITIVE
     Dosage: 750 MILLIGRAM DAILY;
     Route: 042
  8. FLUCONAZOLE. [Suspect]
     Active Substance: FLUCONAZOLE
     Indication: PNEUMONIA LEGIONELLA
     Dosage: 800 MILLIGRAM DAILY;
     Route: 042

REACTIONS (2)
  - Eosinophilic pneumonia [Recovered/Resolved]
  - Pneumothorax [Recovered/Resolved]
